FAERS Safety Report 15742066 (Version 1)
Quarter: 2018Q4

REPORT INFORMATION
  Report Type: Report from Study
  Country: CA (occurrence: CA)
  Receive Date: 20181219
  Receipt Date: 20181219
  Transmission Date: 20190205
  Serious: Yes (Death, Hospitalization)
  Sender: FDA-Public Use
  Company Number: CA-HLSUS-2018-CA-001903

PATIENT
  Age: 88 Year
  Sex: Male

DRUGS (4)
  1. ATORVASTATIN [Concomitant]
     Active Substance: ATORVASTATIN
     Indication: BLOOD CHOLESTEROL INCREASED
     Dosage: 20 MG OD
     Route: 048
     Dates: start: 201405, end: 20181211
  2. METOPROLOL. [Concomitant]
     Active Substance: METOPROLOL
     Indication: HYPERTENSION
     Dosage: 25 MG BID
     Route: 048
     Dates: start: 201405, end: 20181211
  3. CLOZARIL [Suspect]
     Active Substance: CLOZAPINE
     Indication: PSYCHOTIC DISORDER
     Dosage: 6.25 MG DAILY BED TIME
     Route: 048
     Dates: start: 20120502
  4. SYNTHROID [Concomitant]
     Active Substance: LEVOTHYROXINE SODIUM
     Indication: HYPOTHYROIDISM
     Dosage: 137 MCG OD
     Route: 048
     Dates: start: 201303, end: 20181211

REACTIONS (7)
  - Pneumonia aspiration [Fatal]
  - Myocardial infarction [Unknown]
  - Acute coronary syndrome [Unknown]
  - Dyspepsia [Unknown]
  - Dysphagia [Fatal]
  - Sleep disorder [Unknown]
  - Lethargy [Unknown]

NARRATIVE: CASE EVENT DATE: 201406
